FAERS Safety Report 4513387-6 (Version None)
Quarter: 2004Q4

REPORT INFORMATION
  Report Type: 
  Country: None (occurrence: None)
  Receive Date: 20041130
  Receipt Date: 20040907
  Transmission Date: 20050328
  Serious: Yes (Life-Threatening, Other)
  Sender: FDA-Public Use
  Company Number: US-BRISTOL-MYERS SQUIBB COMPANY-12694345

PATIENT
  Age: 80 Year
  Sex: Female

DRUGS (7)
  1. ERBITUX [Suspect]
     Indication: COLON CANCER METASTATIC
     Dosage: 1ST TREATMENT
     Route: 042
     Dates: start: 20040830, end: 20040830
  2. OXALIPLATIN [Concomitant]
  3. XELODA [Concomitant]
  4. ANZEMET [Concomitant]
  5. DECADRON [Concomitant]
  6. HEPARIN [Concomitant]
  7. EPOGEN [Concomitant]

REACTIONS (5)
  - CHEST DISCOMFORT [None]
  - DYSPNOEA [None]
  - HYPOTENSION [None]
  - PRURITUS [None]
  - PYREXIA [None]
